FAERS Safety Report 10936935 (Version 2)
Quarter: 2015Q2

REPORT INFORMATION
  Report Type: Spontaneous
  Country: US (occurrence: US)
  Receive Date: 20150321
  Receipt Date: 20150525
  Transmission Date: 20150821
  Serious: No
  Sender: FDA-Public Use
  Company Number: US-JNJFOC-20150104491

PATIENT
  Age: 65 Year
  Sex: Female

DRUGS (2)
  1. TOPIRAMATE. [Suspect]
     Active Substance: TOPIRAMATE
     Indication: DEMENTIA WITH LEWY BODIES
     Route: 048
  2. TOPIRAMATE. [Suspect]
     Active Substance: TOPIRAMATE
     Indication: DEMENTIA WITH LEWY BODIES
     Route: 048

REACTIONS (6)
  - Hallucination [Not Recovered/Not Resolved]
  - Decreased appetite [Recovering/Resolving]
  - Bradykinesia [Unknown]
  - Weight decreased [Recovering/Resolving]
  - Product use issue [Unknown]
  - Agitation [Recovered/Resolved]
